FAERS Safety Report 16428710 (Version 1)
Quarter: 2019Q2

REPORT INFORMATION
  Report Type: Other
  Country: US (occurrence: US)
  Receive Date: 20190613
  Receipt Date: 20190613
  Transmission Date: 20190711
  Serious: Yes (Other)
  Sender: FDA-Public Use
  Company Number: US-UNIPHARMA LLC-2068210

PATIENT
  Age: 8 Year
  Sex: Female
  Weight: 24.55 kg

DRUGS (2)
  1. CHILDRENS ALLERGY RELIEF (DIPHENHYDRAMINE HYDROCHLORIDE) [Suspect]
     Active Substance: DIPHENHYDRAMINE HYDROCHLORIDE
     Indication: RHINORRHOEA
     Route: 048
     Dates: end: 20190430
  2. GUANFACINE. [Concomitant]
     Active Substance: GUANFACINE
     Route: 048

REACTIONS (1)
  - Cough [Recovered/Resolved]

NARRATIVE: CASE EVENT DATE: 20190430
